FAERS Safety Report 7914700-X (Version None)
Quarter: 2011Q4

REPORT INFORMATION
  Report Type: 
  Country: None (occurrence: None)
  Receive Date: 20111115
  Receipt Date: 20111109
  Transmission Date: 20120403
  Serious: Yes (Life-Threatening)
  Sender: FDA-Public Use
  Company Number: PHEH2011US008914

PATIENT
  Sex: Female

DRUGS (8)
  1. FUROSEMIDE [Concomitant]
     Dosage: 40 MG, QD
  2. TRAMADOL HCL [Concomitant]
     Dosage: UNK UKN, UNK
  3. ASPIRIN [Concomitant]
     Dosage: UNK UKN, UNK
  4. CALCIUM CARBONATE [Concomitant]
     Dosage: UNK UKN, UNK
  5. CENTRUM SILVER [Concomitant]
     Dosage: UNK UKN, UNK
  6. VITAMIN TAB [Concomitant]
     Dosage: UNK UKN, UNK
  7. TEKTURNA [Suspect]
     Dosage: 300 MG, QD
     Route: 048
  8. TEKTURNA [Suspect]
     Dosage: 150 MG, QD

REACTIONS (10)
  - SPEECH DISORDER [None]
  - GAIT DISTURBANCE [None]
  - SOMNOLENCE [None]
  - DIZZINESS [None]
  - LOSS OF CONSCIOUSNESS [None]
  - HEAD INJURY [None]
  - FEELING ABNORMAL [None]
  - DYSPNOEA [None]
  - MALAISE [None]
  - DIARRHOEA [None]
